FAERS Safety Report 6859488-9 (Version None)
Quarter: 2010Q3

REPORT INFORMATION
  Report Type: 
  Country: None (occurrence: None)
  Receive Date: 20100719
  Receipt Date: 20080930
  Transmission Date: 20110219
  Serious: No
  Sender: FDA-Public Use
  Company Number: US-PFIZER INC-2008021222

PATIENT
  Sex: Female
  Weight: 51.8 kg

DRUGS (5)
  1. CHANTIX [Suspect]
     Indication: SMOKING CESSATION THERAPY
     Route: 048
     Dates: start: 20080214
  2. VYTORIN [Concomitant]
  3. PREMARIN [Concomitant]
  4. ACETYLSALICYLIC ACID [Concomitant]
  5. PLAVIX [Concomitant]

REACTIONS (6)
  - CYSTITIS [None]
  - FEELING ABNORMAL [None]
  - HAEMORRHAGE URINARY TRACT [None]
  - NAUSEA [None]
  - NIGHTMARE [None]
  - SCREAMING [None]
